FAERS Safety Report 19151667 (Version 1)
Quarter: 2021Q2

REPORT INFORMATION
  Report Type: Spontaneous
  Country: JP (occurrence: JP)
  Receive Date: 20210419
  Receipt Date: 20210419
  Transmission Date: 20210717
  Serious: Yes (Other)
  Sender: FDA-Public Use
  Company Number: JP-SUN PHARMACEUTICAL INDUSTRIES LTD-2021RR-291784

PATIENT
  Age: 63 Year
  Sex: Female
  Weight: 54.2 kg

DRUGS (1)
  1. MORPHINE [Suspect]
     Active Substance: MORPHINE
     Indication: CANCER PAIN
     Dosage: 40 MILLIGRAM, DAILY
     Route: 042

REACTIONS (2)
  - Somnolence [Unknown]
  - Impaired quality of life [Unknown]
